FAERS Safety Report 8450116-8 (Version None)
Quarter: 2012Q2

REPORT INFORMATION
  Report Type: 
  Country: None (occurrence: None)
  Receive Date: 20120620
  Receipt Date: 20120611
  Transmission Date: 20120825
  Serious: Yes (Other)
  Sender: FDA-Public Use
  Company Number: US-US-EMD SERONO, INC.-7140121

PATIENT
  Sex: Female
  Weight: 172 kg

DRUGS (9)
  1. LASIX [Concomitant]
     Indication: OEDEMA PERIPHERAL
  2. POTASSIUM PILLS [Concomitant]
     Indication: BLOOD POTASSIUM DECREASED
  3. LYRICA [Concomitant]
     Indication: MULTIPLE SCLEROSIS
  4. BACLOFEN [Concomitant]
     Indication: MUSCLE SPASMS
  5. GABAPENTIN [Concomitant]
     Indication: MUSCLE SPASMS
  6. LEVOTHYROXINE SODIUM [Concomitant]
     Indication: THYROID DISORDER
  7. OXYBUTYNIN [Concomitant]
     Indication: URINARY INCONTINENCE
  8. REBIF [Suspect]
     Indication: PRODUCT USED FOR UNKNOWN INDICATION
     Route: 058
     Dates: start: 20110726
  9. VICODIN [Concomitant]
     Indication: PAIN IN EXTREMITY

REACTIONS (1)
  - DIABETES MELLITUS [None]
